FAERS Safety Report 19431822 (Version 1)
Quarter: 2021Q2

REPORT INFORMATION
  Report Type: Spontaneous
  Country: US (occurrence: US)
  Receive Date: 20210617
  Receipt Date: 20210617
  Transmission Date: 20210717
  Serious: Yes (Hospitalization)
  Sender: FDA-Public Use
  Company Number: US-TEVA-2021-US-1922363

PATIENT
  Age: 15 Year
  Sex: Male

DRUGS (5)
  1. DULOXETINE. [Interacting]
     Active Substance: DULOXETINE
     Indication: INTENTIONAL OVERDOSE
     Dosage: FORMULATION: PILLS; INGESTED 3,060 MG DULOXETINE
     Route: 048
  2. HYDROXYZINE [Concomitant]
     Active Substance: HYDROXYZINE HYDROCHLORIDE
     Indication: DEPRESSION
     Route: 065
  3. FLUOXETINE [Suspect]
     Active Substance: FLUOXETINE HYDROCHLORIDE
     Indication: DEPRESSION
     Route: 065
  4. FLUOXETINE [Interacting]
     Active Substance: FLUOXETINE HYDROCHLORIDE
     Indication: ANXIETY
  5. HYDROXYZINE [Concomitant]
     Active Substance: HYDROXYZINE HYDROCHLORIDE
     Indication: ANXIETY

REACTIONS (8)
  - Hyperreflexia [Recovered/Resolved]
  - Toxicity to various agents [Recovering/Resolving]
  - Electrocardiogram QT prolonged [Unknown]
  - Sinus tachycardia [Recovered/Resolved]
  - Drug interaction [Unknown]
  - Intentional overdose [Unknown]
  - Electrocardiogram QRS complex prolonged [Recovered/Resolved]
  - Clonus [Recovered/Resolved]
